FAERS Safety Report 5291350-8 (Version None)
Quarter: 2007Q2

REPORT INFORMATION
  Report Type: 
  Country: None (occurrence: None)
  Receive Date: 20070409
  Receipt Date: 20070330
  Transmission Date: 20071010
  Serious: Yes (Death, Hospitalization, Other)
  Sender: FDA-Public Use
  Company Number: GB-MERCK-00115150

PATIENT
  Age: 65 Year
  Sex: Male

DRUGS (11)
  1. ZOCOR [Suspect]
     Indication: HYPERCHOLESTEROLAEMIA
     Route: 048
     Dates: start: 20000501, end: 20000901
  2. ZOCOR [Suspect]
     Route: 048
     Dates: start: 20000101, end: 20001031
  3. RAMIPRIL [Concomitant]
     Route: 065
  4. CIMETIDINE [Concomitant]
     Indication: GASTROOESOPHAGEAL REFLUX DISEASE
     Route: 065
     Dates: end: 20000101
  5. ASPIRIN [Concomitant]
     Indication: MYOCARDIAL ISCHAEMIA
     Route: 048
     Dates: start: 19950101, end: 20000101
  6. ASPIRIN [Concomitant]
     Indication: MYOCARDIAL INFARCTION
     Route: 048
     Dates: start: 19950101, end: 20000101
  7. ATENOLOL [Concomitant]
     Indication: MYOCARDIAL ISCHAEMIA
     Route: 048
     Dates: start: 19950101, end: 20000101
  8. ATENOLOL [Concomitant]
     Indication: MYOCARDIAL INFARCTION
     Route: 048
     Dates: start: 19950101, end: 20000101
  9. CIPROFLOXACIN [Concomitant]
     Route: 065
  10. VASOTEC [Concomitant]
     Indication: MYOCARDIAL INFARCTION
     Route: 048
     Dates: start: 19940101, end: 20001104
  11. PRAVASTATIN SODIUM [Suspect]
     Indication: HYPERCHOLESTEROLAEMIA
     Route: 065

REACTIONS (8)
  - ABSCESS INTESTINAL [None]
  - COLITIS ULCERATIVE [None]
  - DRUG INEFFECTIVE [None]
  - HYPOTENSION [None]
  - MEGACOLON [None]
  - MULTI-ORGAN FAILURE [None]
  - PERITONITIS [None]
  - SEPTIC SHOCK [None]
